FAERS Safety Report 16932624 (Version 1)
Quarter: 2019Q4

REPORT INFORMATION
  Report Type: Spontaneous
  Country: AT (occurrence: AT)
  Receive Date: 20191017
  Receipt Date: 20191017
  Transmission Date: 20200122
  Serious: Yes (Other)
  Sender: FDA-Public Use
  Company Number: NVSC2019AT006481

PATIENT
  Sex: Male

DRUGS (1)
  1. GILENYA [Suspect]
     Active Substance: FINGOLIMOD HYDROCHLORIDE
     Indication: RELAPSING-REMITTING MULTIPLE SCLEROSIS
     Dosage: UNK
     Route: 065
     Dates: start: 2012

REACTIONS (5)
  - Gamma-glutamyltransferase increased [Unknown]
  - Blood immunoglobulin M decreased [Unknown]
  - Central nervous system lesion [Unknown]
  - Progressive multiple sclerosis [Unknown]
  - Blood immunoglobulin G decreased [Unknown]
